FAERS Safety Report 4623732-9 (Version None)
Quarter: 2005Q1

REPORT INFORMATION
  Report Type: 
  Country: None (occurrence: None)
  Receive Date: 20050331
  Receipt Date: 20050322
  Transmission Date: 20050727
  Serious: Yes (Other)
  Sender: FDA-Public Use
  Company Number: PHBS2005CA04195

PATIENT
  Sex: Male

DRUGS (6)
  1. SANDOSTATIN [Suspect]
     Indication: DIARRHOEA
     Dosage: 0.75 ML, TID
     Route: 058
     Dates: start: 20040101
  2. DILAUDID [Concomitant]
     Dosage: 1 MG, UNK
  3. NOVO-LORAZEM [Concomitant]
     Dosage: UNK MG, UNK
  4. PANTOPRAZOLE SODIUM [Concomitant]
     Dosage: 40 MG, UNK
  5. SPIROTONE [Concomitant]
     Dosage: 25 MG, UNK
  6. HMS 90 [Concomitant]

REACTIONS (12)
  - ABDOMINAL DISTENSION [None]
  - CONSTIPATION [None]
  - DIARRHOEA [None]
  - FATIGUE [None]
  - GASTROINTESTINAL MOTILITY DISORDER [None]
  - INJECTION SITE ERYTHEMA [None]
  - INJECTION SITE EXTRAVASATION [None]
  - INJECTION SITE IRRITATION [None]
  - INJECTION SITE REACTION [None]
  - LIVER OPERATION [None]
  - PHARMACEUTICAL PRODUCT COMPLAINT [None]
  - VISION BLURRED [None]
